FAERS Safety Report 16044604 (Version 2)
Quarter: 2019Q3

REPORT INFORMATION
  Report Type: Spontaneous
  Country: IE (occurrence: IE)
  Receive Date: 20190306
  Receipt Date: 20190912
  Transmission Date: 20191004
  Serious: Yes (Death)
  Sender: FDA-Public Use
  Company Number: IE-AUROBINDO-AUR-APL-2018-028602

PATIENT

DRUGS (18)
  1. VANCOMYCIN [Suspect]
     Active Substance: VANCOMYCIN
     Indication: DEVICE RELATED SEPSIS
     Dosage: UNK
     Route: 065
  2. MEROPENEM. [Suspect]
     Active Substance: MEROPENEM
     Indication: SEPSIS
     Dosage: UNK
     Route: 065
  3. PHENYTOIN. [Concomitant]
     Active Substance: PHENYTOIN
     Dosage: 100 MILLIGRAM, 3 TIMES A DAY
     Route: 065
  4. SODIUM VALPROATE [Interacting]
     Active Substance: VALPROATE SODIUM
     Dosage: 1800 MILLIGRAM, ONCE A DAY, 600 MG, THREE TIMES A DAY (TDS)
     Route: 040
  5. CASPOFUNGIN [Suspect]
     Active Substance: CASPOFUNGIN
     Indication: DEVICE RELATED SEPSIS
     Dosage: UNK
     Route: 065
  6. LEVETIRACETAM ACCORD [Concomitant]
     Active Substance: LEVETIRACETAM
     Dosage: 1500 MG, BID
     Route: 065
  7. LACOSAMIDE. [Concomitant]
     Active Substance: LACOSAMIDE
     Dosage: 100 MILLIGRAM,12 PER HOUR
     Route: 065
  8. MIDAZOLAM [Interacting]
     Active Substance: MIDAZOLAM HYDROCHLORIDE
     Indication: STATUS EPILEPTICUS
  9. LACOSAMIDE. [Concomitant]
     Active Substance: LACOSAMIDE
     Indication: STATUS EPILEPTICUS
     Dosage: 200 MILLIGRAM, ONCE A DAY, 100 MG, TWICE A DAY (BD)
     Route: 065
  10. SODIUM VALPROATE [Interacting]
     Active Substance: VALPROATE SODIUM
     Indication: STATUS EPILEPTICUS
     Dosage: UNK, DAILY (INCREASED DAILY VPA DOSE) ()
     Route: 040
  11. AZTREONAM. [Concomitant]
     Active Substance: AZTREONAM
     Indication: SEPSIS
     Dosage: UNK
     Route: 065
  12. PROPOFOL. [Concomitant]
     Active Substance: PROPOFOL
     Indication: SEIZURE
     Dosage: UNK
     Route: 042
  13. PHENYTOIN. [Concomitant]
     Active Substance: PHENYTOIN
     Indication: STATUS EPILEPTICUS
     Dosage: 300 MILLIGRAM, ONCE A DAY, 100 MG, THREE TIMES A DAY (TDS)
     Route: 065
  14. PIPERACILLIN AND TAZOBACTAM [Suspect]
     Active Substance: PIPERACILLIN SODIUM\TAZOBACTAM SODIUM
     Indication: DEVICE RELATED SEPSIS
     Dosage: UNK
     Route: 065
  15. SODIUM VALPROATE [Interacting]
     Active Substance: VALPROATE SODIUM
     Dosage: 600 MILLIGRAM, 8 PER HOUR
  16. THIOPENTAL SODIUM. [Concomitant]
     Active Substance: THIOPENTAL SODIUM
     Indication: SEIZURE
     Dosage: UNK
     Route: 065
  17. MIDAZOLAM [Interacting]
     Active Substance: MIDAZOLAM HYDROCHLORIDE
     Indication: SEIZURE
     Dosage: 10 MILLIGRAM, 10 MG PER HOUR
     Route: 042
  18. LEVETIRACETAM ACCORD [Concomitant]
     Active Substance: LEVETIRACETAM
     Indication: STATUS EPILEPTICUS
     Dosage: 3000 MILLIGRAM, 1500 MG, TWICE A DAY (BD)
     Route: 065

REACTIONS (3)
  - Drug ineffective [Fatal]
  - Drug level decreased [Not Recovered/Not Resolved]
  - Drug interaction [Not Recovered/Not Resolved]
